FAERS Safety Report 10429440 (Version 1)
Quarter: 2014Q3

REPORT INFORMATION
  Report Type: Spontaneous
  Country: US (occurrence: US)
  Receive Date: 20140904
  Receipt Date: 20140904
  Transmission Date: 20150326
  Serious: Yes (Death)
  Sender: FDA-Public Use
  Company Number: US-JNJFOC-20140900057

PATIENT
  Age: 49 Year
  Sex: Male
  Weight: 66.68 kg

DRUGS (2)
  1. LISTERINE ORIGINAL [Suspect]
     Active Substance: EUCALYPTOL\MENTHOL\METHYL SALICYLATE\THYMOL
     Indication: INTENTIONAL OVERDOSE
     Route: 048
  2. LISTERINE NATURALS ANTICAVITY - HERBAL MINT [Suspect]
     Active Substance: SODIUM FLUORIDE
     Indication: INTENTIONAL OVERDOSE
     Route: 048

REACTIONS (2)
  - Poisoning [Fatal]
  - Intentional product misuse [Unknown]
